FAERS Safety Report 9280906 (Version 1)
Quarter: 2013Q2

REPORT INFORMATION
  Report Type: Spontaneous
  Country: US (occurrence: None)
  Receive Date: 20130508
  Receipt Date: 20130508
  Transmission Date: 20140414
  Serious: No
  Sender: FDA-Public Use
  Company Number: None

PATIENT
  Age: 64 Year
  Sex: Female
  Weight: 61.24 kg

DRUGS (2)
  1. HYDROCODONE [Suspect]
     Dosage: 325/10 6X PO
     Route: 048
     Dates: start: 20130306, end: 20130405
  2. HYDROCODONE [Suspect]
     Dosage: 325/10 6X PO
     Route: 048
     Dates: start: 20130406, end: 20130506

REACTIONS (2)
  - Drug ineffective [None]
  - Product substitution issue [None]
